FAERS Safety Report 9197889 (Version 2)
Quarter: 2013Q2

REPORT INFORMATION
  Report Type: Spontaneous
  Country: AU (occurrence: AU)
  Receive Date: 20130328
  Receipt Date: 20130522
  Transmission Date: 20140414
  Serious: Yes (Hospitalization)
  Sender: FDA-Public Use
  Company Number: AU-B.I. PHARMACEUTICALS,INC./RIDGEFIELD-2013-AU-00359AU

PATIENT
  Sex: Female
  Weight: 97.6 kg

DRUGS (2)
  1. CATAPRES [Suspect]
     Dosage: 600 MG
  2. CATAPRES [Suspect]
     Dosage: 900 MG

REACTIONS (3)
  - Bradycardia [Recovered/Resolved]
  - Dyspnoea [Recovered/Resolved]
  - Drug dispensing error [Unknown]
